FAERS Safety Report 22074089 (Version 1)
Quarter: 2023Q1

REPORT INFORMATION
  Report Type: Spontaneous
  Country: US (occurrence: None)
  Receive Date: 20230307
  Receipt Date: 20230307
  Transmission Date: 20230417
  Serious: Yes (Other)
  Sender: FDA-Public Use
  Company Number: None

PATIENT
  Age: 43 Year
  Sex: Female
  Weight: 76.5 kg

DRUGS (8)
  1. JEUVEAU [Suspect]
     Active Substance: PRABOTULINUMTOXINA-XVFS
     Indication: Skin cosmetic procedure
     Dates: start: 20230116, end: 20230116
  2. COPPER [Concomitant]
     Active Substance: COPPER
  3. CHOLINE [Concomitant]
     Active Substance: CHOLINE
  4. QUERCETIN [Concomitant]
     Active Substance: QUERCETIN
  5. VITAMIN C [Concomitant]
     Active Substance: ASCORBIC ACID
  6. HERBALS\WITHANIA SOMNIFERA ROOT [Concomitant]
     Active Substance: HERBALS\WITHANIA SOMNIFERA ROOT
  7. CLARITIN [Concomitant]
     Active Substance: LORATADINE
  8. PEPCID AC [Concomitant]
     Active Substance: FAMOTIDINE

REACTIONS (6)
  - Dysphagia [None]
  - Photophobia [None]
  - Vision blurred [None]
  - Constipation [None]
  - Dyspnoea [None]
  - Panic attack [None]

NARRATIVE: CASE EVENT DATE: 20230205
